FAERS Safety Report 4868516-1 (Version None)
Quarter: 2005Q4

REPORT INFORMATION
  Report Type: 
  Country: None (occurrence: None)
  Receive Date: 20051227
  Receipt Date: 20051201
  Transmission Date: 20060501
  Serious: Yes (Death, Other)
  Sender: FDA-Public Use
  Company Number: A-US2005-10900

PATIENT
  Age: 82 Year
  Sex: Female
  Weight: 69.4 kg

DRUGS (9)
  1. TRACLEER [Suspect]
     Indication: PULMONARY HYPERTENSION
     Dosage: 125 MG, BID, ORAL
     Route: 048
     Dates: start: 20031106, end: 20050925
  2. AROMIST SHOT DEPOT [Concomitant]
  3. CALCIUM (CALCIUM) [Concomitant]
  4. LASIX [Concomitant]
  5. LEVOTHYROXINE SODIUM [Concomitant]
  6. NEURONTIN [Concomitant]
  7. NEXIUM [Concomitant]
  8. OXYGEN (OXYGEN) [Concomitant]
  9. VANCOMYCIN [Concomitant]

REACTIONS (5)
  - ACUTE RESPIRATORY FAILURE [None]
  - CELLULITIS [None]
  - ENTEROCOLITIS [None]
  - HEPATIC CIRRHOSIS [None]
  - INTERSTITIAL LUNG DISEASE [None]
